FAERS Safety Report 25093496 (Version 2)
Quarter: 2025Q3

REPORT INFORMATION
  Report Type: Report from Study
  Country: US (occurrence: US)
  Receive Date: 20250319
  Receipt Date: 20250802
  Transmission Date: 20251021
  Serious: Yes (Other)
  Sender: ALEXION PHARMACEUTICALS
  Company Number: US-AstraZeneca-CH-00827093A

PATIENT
  Sex: Female

DRUGS (1)
  1. OSIMERTINIB [Suspect]
     Active Substance: OSIMERTINIB
     Route: 065

REACTIONS (5)
  - Neoplasm malignant [Unknown]
  - Muscle spasms [Unknown]
  - Full blood count abnormal [Unknown]
  - Myalgia [Unknown]
  - Electrolyte imbalance [Unknown]
